FAERS Safety Report 9450869 (Version 1)
Quarter: 2013Q3

REPORT INFORMATION
  Report Type: Report from Study
  Country: NL (occurrence: NL)
  Receive Date: 20130809
  Receipt Date: 20130809
  Transmission Date: 20140515
  Serious: Yes (Death)
  Sender: FDA-Public Use
  Company Number: NL-ASTRAZENECA-2013SE61202

PATIENT
  Sex: Male

DRUGS (1)
  1. GOSERELIN [Suspect]
     Route: 058
     Dates: start: 20130326

REACTIONS (1)
  - Death [Fatal]
